FAERS Safety Report 16314949 (Version 1)
Quarter: 2019Q2

REPORT INFORMATION
  Report Type: Spontaneous
  Country: US (occurrence: US)
  Receive Date: 20190515
  Receipt Date: 20190515
  Transmission Date: 20190711
  Serious: Yes (Other)
  Sender: FDA-Public Use
  Company Number: US-PFIZER INC-2019203646

PATIENT
  Age: 62 Year
  Sex: Female

DRUGS (1)
  1. VERAPAMIL HCL [Suspect]
     Active Substance: VERAPAMIL HYDROCHLORIDE
     Dosage: UNK
     Dates: start: 1987

REACTIONS (5)
  - Drug hypersensitivity [Unknown]
  - Malaise [Unknown]
  - Weight increased [Unknown]
  - Nail disorder [Unknown]
  - Oedema [Unknown]

NARRATIVE: CASE EVENT DATE: 200712
